FAERS Safety Report 4908216-2 (Version None)
Quarter: 2006Q1

REPORT INFORMATION
  Report Type: 
  Country: None (occurrence: None)
  Receive Date: 20060210
  Receipt Date: 20060109
  Transmission Date: 20060701
  Serious: Yes (Death, Other)
  Sender: FDA-Public Use
  Company Number: US-MERCK-0601USA01020

PATIENT
  Age: 78 Year
  Sex: Female
  Weight: 66 kg

DRUGS (3)
  1. VIOXX [Suspect]
     Indication: ARTHRITIS
     Route: 048
     Dates: start: 20020101, end: 20040101
  2. CELEBREX [Concomitant]
     Indication: ARTHRITIS
     Route: 065
  3. REMINYL [Concomitant]
     Indication: DEMENTIA ALZHEIMER'S TYPE
     Route: 065

REACTIONS (2)
  - CEREBROVASCULAR ACCIDENT [None]
  - HYPERTENSIVE CARDIOMYOPATHY [None]
